FAERS Safety Report 9312674 (Version 1)
Quarter: 2013Q2

REPORT INFORMATION
  Report Type: Report from Study
  Country: CA (occurrence: CA)
  Receive Date: 20130528
  Receipt Date: 20130528
  Transmission Date: 20140414
  Serious: Yes (Death)
  Sender: FDA-Public Use
  Company Number: CA-ASTRAZENECA-2013SE35728

PATIENT
  Age: 69 Year
  Sex: Male

DRUGS (1)
  1. ZOLADEX [Suspect]
     Indication: PROSTATE CANCER
     Route: 058

REACTIONS (1)
  - Death [Fatal]
